FAERS Safety Report 9848004 (Version 1)
Quarter: 2013Q4

REPORT INFORMATION
  Report Type: Spontaneous
  Country: US (occurrence: None)
  Receive Date: 20131223
  Receipt Date: 20131223
  Transmission Date: 20140711
  Serious: No
  Sender: FDA-Public Use
  Company Number: 1000051467

PATIENT
  Age: 69 Year
  Sex: Female

DRUGS (10)
  1. LINZESS [Suspect]
     Indication: CONSTIPATION
     Dosage: 290 MCG (290 MCG, 1 IN 1 D), ORAL
     Route: 048
     Dates: start: 20131025
  2. BISACODYL (BISACODYL) (5 MILLIGRAM) (BISACODYL) [Concomitant]
  3. LEVOTHYROXINE (LEVOTHYROXINE SODIUM) (100 MICROGRAM) (LEVOTHYROXINE SODIUM) [Concomitant]
  4. SIMVASTATIN (SIMVASTATIN) (SIMVASTATIN) [Concomitant]
  5. VENLAFAXINE (VENLAFAXINE)  (150 MILLIGRAM, CAPSULES) (VENLAFAXINE)? [Concomitant]
  6. TAZODONE (TRAZODONE) (TRAZODONE) [Concomitant]
  7. EVISTA (RALOXIFENE HYROCHLORIDE) (RALOXIFENE HYDROCHLORIDE)? [Concomitant]
  8. BABY ASPIRIN (ACETYLSALICYLCI ACID) (ACETYLSALICYLIC ACID) [Concomitant]
  9. VIT B3 (NICOTINAMIDE) (NICOTINAMIDE) [Concomitant]
  10. BUPROPION (BUPROPION) (BUPROPION) [Concomitant]

REACTIONS (2)
  - Drug ineffective [None]
  - Diarrhoea [None]
